FAERS Safety Report 8524206-5 (Version None)
Quarter: 2012Q3

REPORT INFORMATION
  Report Type: 
  Country: None (occurrence: None)
  Receive Date: 20120720
  Receipt Date: 20120710
  Transmission Date: 20120928
  Serious: Yes (Hospitalization, Other)
  Sender: FDA-Public Use
  Company Number: US-VERTEX PHARMACEUTICALS INC.-AE-2012-004729

PATIENT
  Sex: Male
  Weight: 69.916 kg

DRUGS (10)
  1. CHOLESTYRAMINE [Concomitant]
     Route: 048
     Dates: start: 20120524
  2. HYDROCODONE BITARTRATE [Concomitant]
  3. FLUOXETINE HCL [Concomitant]
     Route: 048
     Dates: start: 20120210
  4. RIBAVIRIN [Concomitant]
     Route: 048
  5. PEGASYS [Concomitant]
     Indication: HEPATITIS C
     Route: 058
     Dates: start: 20120228, end: 20120522
  6. RIBAVIRIN [Concomitant]
     Indication: HEPATITIS C
     Route: 048
     Dates: start: 20120228, end: 20120522
  7. PEGASYS [Concomitant]
     Route: 058
  8. TEMAZEPAM [Concomitant]
     Route: 048
     Dates: start: 20120210
  9. PAROXETINE [Concomitant]
     Route: 048
  10. INCIVEK [Suspect]
     Indication: HEPATITIS C
     Route: 048
     Dates: start: 20120228, end: 20120522

REACTIONS (13)
  - EAR INFECTION [None]
  - ANAEMIA [None]
  - PLATELET COUNT DECREASED [None]
  - NAUSEA [None]
  - WHITE BLOOD CELL COUNT DECREASED [None]
  - PAIN [None]
  - FATIGUE [None]
  - MEMORY IMPAIRMENT [None]
  - RENAL FAILURE ACUTE [None]
  - DYSPNOEA [None]
  - DRUG RASH WITH EOSINOPHILIA AND SYSTEMIC SYMPTOMS [None]
  - APHAGIA [None]
  - IRRITABILITY [None]
